FAERS Safety Report 7543965-1 (Version None)
Quarter: 2011Q2

REPORT INFORMATION
  Report Type: 
  Country: None (occurrence: None)
  Receive Date: 20110613
  Receipt Date: 20050429
  Transmission Date: 20111010
  Serious: Yes (Other)
  Sender: FDA-Public Use
  Company Number: PHFR2005GB01159

PATIENT
  Sex: Female

DRUGS (5)
  1. CLOZAPINE [Suspect]
     Indication: SCHIZOPHRENIA
     Route: 048
     Dates: start: 19900405
  2. SERTRALINE HYDROCHLORIDE [Concomitant]
     Indication: DEPRESSED MOOD
     Dosage: 50 MG/DAY
     Route: 048
  3. ASPIRIN [Concomitant]
     Dosage: 75 MG/DAY
     Route: 048
  4. TRAMADOL HCL [Concomitant]
     Indication: PAIN
     Dosage: 150 MG/DAY
     Route: 048
  5. PRIMIDONE [Concomitant]
     Indication: TREMOR

REACTIONS (3)
  - NEUTROPHIL COUNT [None]
  - WHITE BLOOD CELL COUNT INCREASED [None]
  - URINARY TRACT INFECTION [None]
